FAERS Safety Report 10086107 (Version 1)
Quarter: 2014Q2

REPORT INFORMATION
  Report Type: Spontaneous
  Country: US (occurrence: US)
  Receive Date: 20140418
  Receipt Date: 20140418
  Transmission Date: 20141212
  Serious: Yes (Other)
  Sender: FDA-Public Use
  Company Number: US-ASTRAZENECA-2014SE25635

PATIENT
  Age: 35 Year
  Sex: Female
  Weight: 45.4 kg

DRUGS (1)
  1. NEXIUM [Suspect]
     Indication: OESOPHAGOGASTRIC FUNDOPLASTY
     Route: 048
     Dates: start: 2013, end: 201404

REACTIONS (4)
  - Pharyngeal oedema [Recovering/Resolving]
  - Laryngospasm [Unknown]
  - Rash generalised [Recovering/Resolving]
  - Off label use [Unknown]
